FAERS Safety Report 13931475 (Version 1)
Quarter: 2017Q3

REPORT INFORMATION
  Report Type: Spontaneous
  Country: FR (occurrence: FR)
  Receive Date: 20170903
  Receipt Date: 20170903
  Transmission Date: 20171127
  Serious: Yes (Life-Threatening)
  Sender: FDA-Public Use
  Company Number: PHHY2017FR129465

PATIENT
  Age: 35 Year
  Sex: Male

DRUGS (3)
  1. ZUCLOPENTHIXOL [Concomitant]
     Active Substance: ZUCLOPENTHIXOL
     Indication: PRODUCT USED FOR UNKNOWN INDICATION
     Dosage: EVERY 03 WEEKS
     Route: 030
  2. TEGRETOL [Suspect]
     Active Substance: CARBAMAZEPINE
     Indication: TOXICITY TO VARIOUS AGENTS
     Dosage: 400 MG, BID
     Route: 048
  3. TEGRETOL [Suspect]
     Active Substance: CARBAMAZEPINE
     Dosage: 20 AND 30 TABLETS (400 MG)
     Route: 048
     Dates: start: 20170817

REACTIONS (5)
  - Dystonia [Recovered/Resolved]
  - Rhabdomyolysis [Recovered/Resolved]
  - Poisoning deliberate [Recovered/Resolved]
  - Disturbance in attention [Recovered/Resolved]
  - Dyskinesia [Recovered/Resolved]

NARRATIVE: CASE EVENT DATE: 20170817
